FAERS Safety Report 25574303 (Version 1)
Quarter: 2025Q3

REPORT INFORMATION
  Report Type: Spontaneous
  Country: US (occurrence: US)
  Receive Date: 20250717
  Receipt Date: 20250717
  Transmission Date: 20251021
  Serious: Yes (Other)
  Sender: JOHNSON AND JOHNSON
  Company Number: US-JNJFOC-20250717301

PATIENT
  Age: 23 Year
  Sex: Female

DRUGS (2)
  1. CABENUVA [Suspect]
     Active Substance: CABOTEGRAVIR\RILPIVIRINE
     Indication: HIV infection
     Route: 065
     Dates: start: 20250527
  2. CABENUVA [Suspect]
     Active Substance: CABOTEGRAVIR\RILPIVIRINE
     Indication: HIV infection
     Route: 065
     Dates: start: 20250527

REACTIONS (4)
  - Syncope [Recovering/Resolving]
  - Deep vein thrombosis [Recovering/Resolving]
  - Injection site pain [Unknown]
  - Musculoskeletal pain [Unknown]

NARRATIVE: CASE EVENT DATE: 20250627
